FAERS Safety Report 6516399-6 (Version None)
Quarter: 2009Q4

REPORT INFORMATION
  Report Type: 
  Country: None (occurrence: None)
  Receive Date: 20091223
  Receipt Date: 20091215
  Transmission Date: 20100525
  Serious: Yes (Other)
  Sender: FDA-Public Use
  Company Number: B0600838A

PATIENT
  Sex: Female

DRUGS (3)
  1. MALARONE [Suspect]
     Indication: MALARIA PROPHYLAXIS
     Dosage: 1TAB PER DAY
     Route: 048
     Dates: start: 20091002, end: 20091011
  2. QUETIAPINE FUMARATE [Concomitant]
     Indication: BIPOLAR DISORDER
     Dosage: 100MG PER DAY
  3. EFFEXOR [Concomitant]
     Indication: BIPOLAR DISORDER
     Dosage: 150MG PER DAY

REACTIONS (7)
  - ABDOMINAL DISCOMFORT [None]
  - DEPRESSED MOOD [None]
  - INSOMNIA [None]
  - MALAISE [None]
  - NAUSEA [None]
  - SUICIDAL BEHAVIOUR [None]
  - THINKING ABNORMAL [None]
